FAERS Safety Report 24174802 (Version 1)
Quarter: 2024Q3

REPORT INFORMATION
  Report Type: Report from Study
  Country: GB (occurrence: GB)
  Receive Date: 20240805
  Receipt Date: 20240805
  Transmission Date: 20241017
  Serious: Yes (Other)
  Sender: TAKEDA
  Company Number: GB-TAKEDA-2023TUS122020

PATIENT
  Sex: Female
  Weight: 97 kg

DRUGS (8)
  1. ADAMTS13, RECOMBINANT-KRHN [Suspect]
     Active Substance: ADAMTS13, RECOMBINANT-KRHN
     Indication: Prophylaxis
     Dosage: 34 INTERNATIONAL UNIT/KILOGRAM, 1/WEEK
     Route: 042
     Dates: start: 202304
  2. ADAMTS13, RECOMBINANT-KRHN [Suspect]
     Active Substance: ADAMTS13, RECOMBINANT-KRHN
     Indication: Migraine
     Dosage: 41 INTERNATIONAL UNIT/KILOGRAM, 1/WEEK
     Route: 042
     Dates: start: 20231207
  3. ADAMTS13, RECOMBINANT-KRHN [Suspect]
     Active Substance: ADAMTS13, RECOMBINANT-KRHN
     Dosage: 4006 INTERNATIONAL UNIT, 1/WEEK
     Route: 042
  4. ADAMTS13, RECOMBINANT-KRHN [Suspect]
     Active Substance: ADAMTS13, RECOMBINANT-KRHN
     Dosage: 4006 INTERNATIONAL UNIT, 1/WEEK
     Route: 042
  5. ADAMTS13, RECOMBINANT-KRHN [Suspect]
     Active Substance: ADAMTS13, RECOMBINANT-KRHN
     Dosage: 4006 INTERNATIONAL UNIT, 1/WEEK
     Route: 042
  6. LABETALOL [Concomitant]
     Active Substance: LABETALOL\LABETALOL HYDROCHLORIDE
     Indication: Hypertension
     Dosage: 300 MILLIGRAM, 3/WEEK
     Route: 048
     Dates: start: 202311
  7. METFORMIN [Concomitant]
     Active Substance: METFORMIN HYDROCHLORIDE
     Indication: Gestational diabetes
     Dosage: UNK UNK, 2/WEEK
     Route: 048
  8. DALTEPARIN [Concomitant]
     Active Substance: DALTEPARIN
     Indication: Thrombosis prophylaxis
     Dosage: 7500 INTERNATIONAL UNIT, 1/WEEK
     Route: 058
     Dates: start: 202401

REACTIONS (5)
  - Stillbirth [Recovered/Resolved]
  - Drug level abnormal [Unknown]
  - Extra dose administered [Unknown]
  - Migraine [Unknown]
  - Exposure during pregnancy [Recovered/Resolved]
